FAERS Safety Report 10213983 (Version 1)
Quarter: 2014Q2

REPORT INFORMATION
  Report Type: Spontaneous
  Country: CO (occurrence: CO)
  Receive Date: 20140603
  Receipt Date: 20140603
  Transmission Date: 20141212
  Serious: Yes (Other)
  Sender: FDA-Public Use
  Company Number: CO-MYLANLABS-2014S1012391

PATIENT
  Age: 13 Year
  Sex: Female

DRUGS (9)
  1. METHOTREXATE [Suspect]
     Indication: ACUTE LYMPHOCYTIC LEUKAEMIA
     Route: 065
  2. PREDNISOLONE [Concomitant]
     Indication: ACUTE LYMPHOCYTIC LEUKAEMIA
     Route: 065
  3. VINCRISTINE [Concomitant]
     Indication: ACUTE LYMPHOCYTIC LEUKAEMIA
     Dosage: FOUR DOSES
     Route: 065
  4. ASPARAGINASE [Concomitant]
     Indication: ACUTE LYMPHOCYTIC LEUKAEMIA
     Dosage: EIGHT DOSES
     Route: 065
  5. CYCLOPHOSPHAMIDE [Concomitant]
     Indication: ACUTE LYMPHOCYTIC LEUKAEMIA
     Dosage: TWO DOSES; INTENSIFICATION PHASE
     Route: 065
  6. CYTARABINE [Concomitant]
     Indication: ACUTE LYMPHOCYTIC LEUKAEMIA
     Dosage: 16 DOSES; INTENSIFICATION PHASE
     Route: 065
  7. MERCAPTOPURINE [Concomitant]
     Indication: ACUTE LYMPHOCYTIC LEUKAEMIA
     Dosage: INTENSIFICATION PHASE
     Route: 065
  8. FOLINIC ACID [Concomitant]
     Indication: NEUTROPENIA
     Route: 065
  9. DAUNORUBICIN [Concomitant]
     Indication: ACUTE LYMPHOCYTIC LEUKAEMIA
     Dosage: FOUR DOSES
     Route: 065

REACTIONS (3)
  - Hemiparesis [Recovered/Resolved]
  - VIIth nerve paralysis [Recovered/Resolved]
  - Toxicity to various agents [Recovered/Resolved]
